FAERS Safety Report 7787312-9 (Version None)
Quarter: 2011Q3

REPORT INFORMATION
  Report Type: 
  Country: None (occurrence: None)
  Receive Date: 20110929
  Receipt Date: 20110921
  Transmission Date: 20111222
  Serious: Yes (Hospitalization)
  Sender: FDA-Public Use
  Company Number: PHHY2011US84479

PATIENT
  Age: 28 Year
  Sex: Female

DRUGS (1)
  1. VENLAFAXINE HYDROCHLORIDE [Suspect]

REACTIONS (11)
  - INTESTINAL ISCHAEMIA [None]
  - INTENTIONAL OVERDOSE [None]
  - DECREASED APPETITE [None]
  - ABDOMINAL TENDERNESS [None]
  - TREMOR [None]
  - DIARRHOEA [None]
  - BODY TEMPERATURE DECREASED [None]
  - ABDOMINAL PAIN LOWER [None]
  - RESPIRATORY RATE DECREASED [None]
  - HEART RATE DECREASED [None]
  - TACHYCARDIA [None]
